FAERS Safety Report 5387010-5 (Version None)
Quarter: 2007Q3

REPORT INFORMATION
  Report Type: 
  Country: None (occurrence: None)
  Receive Date: 20070713
  Receipt Date: 20070709
  Transmission Date: 20080115
  Serious: Yes (Other)
  Sender: FDA-Public Use
  Company Number: US-PFIZER INC-2007055956

PATIENT
  Age: 55 Year
  Sex: Female

DRUGS (4)
  1. LIPITOR [Suspect]
  2. TOPROL-XL [Concomitant]
  3. BENICAR [Concomitant]
  4. CATAPRES [Concomitant]

REACTIONS (2)
  - ANGIOPLASTY [None]
  - RENAL ARTERY STENOSIS [None]
